FAERS Safety Report 18366672 (Version 3)
Quarter: 2020Q4

REPORT INFORMATION
  Report Type: Spontaneous
  Country: US (occurrence: US)
  Receive Date: 20201009
  Receipt Date: 20201106
  Transmission Date: 20210114
  Serious: No
  Sender: FDA-Public Use
  Company Number: US-SA-2020SA273509

PATIENT

DRUGS (3)
  1. LANTUS [Suspect]
     Active Substance: INSULIN GLARGINE
     Dosage: 12 IU, QD
     Route: 065
  2. LANTUS [Suspect]
     Active Substance: INSULIN GLARGINE
     Dosage: 10 IU, QD (DECREASED )
     Route: 065
     Dates: start: 2020, end: 2020
  3. LANTUS [Suspect]
     Active Substance: INSULIN GLARGINE
     Dosage: INCREASED AGAIN BY HER DOCTOR BACK TO 12 IU, QD
     Route: 065
     Dates: start: 2020

REACTIONS (1)
  - Blood glucose decreased [Unknown]

NARRATIVE: CASE EVENT DATE: 202009
